FAERS Safety Report 5118379-4 (Version None)
Quarter: 2006Q3

REPORT INFORMATION
  Report Type: 
  Country: None (occurrence: None)
  Receive Date: 20060926
  Receipt Date: 20060919
  Transmission Date: 20061208
  Serious: Yes (Other)
  Sender: FDA-Public Use
  Company Number: FR200601004369

PATIENT
  Age: 64 Year
  Sex: Male

DRUGS (6)
  1. ZYPREXA [Suspect]
     Indication: BIPOLAR DISORDER
     Dosage: SEE IMAGE
     Route: 048
     Dates: start: 20030429, end: 20051206
  2. ZYPREXA [Suspect]
     Indication: BIPOLAR DISORDER
     Dosage: SEE IMAGE
     Route: 048
     Dates: start: 20051206, end: 20060126
  3. ZYPREXA [Suspect]
     Indication: BIPOLAR DISORDER
     Dosage: SEE IMAGE
     Route: 048
     Dates: start: 20060126, end: 20060207
  4. LITHIUM CARBONATE [Concomitant]
  5. VALIUM /NET/ (DIAZEPAM) [Concomitant]
  6. AKINETON [Concomitant]

REACTIONS (4)
  - CONDITION AGGRAVATED [None]
  - CREATININE RENAL CLEARANCE DECREASED [None]
  - LYMPHOPENIA [None]
  - NEUTROPENIA [None]
